FAERS Safety Report 4451258-4 (Version None)
Quarter: 2004Q3

REPORT INFORMATION
  Report Type: 
  Country: None (occurrence: None)
  Receive Date: 20040916
  Receipt Date: 20040907
  Transmission Date: 20050211
  Serious: Yes (Other)
  Sender: FDA-Public Use
  Company Number: AU-BRISTOL-MYERS SQUIBB COMPANY-12694261

PATIENT
  Sex: Female

DRUGS (3)
  1. REYATAZ [Suspect]
  2. RITONAVIR [Concomitant]
  3. SAQUINAVIR MESYLATE [Concomitant]

REACTIONS (1)
  - DEAFNESS [None]
